FAERS Safety Report 7129925-3 (Version None)
Quarter: 2010Q4

REPORT INFORMATION
  Report Type: 
  Country: None (occurrence: None)
  Receive Date: 20101130
  Receipt Date: 20101112
  Transmission Date: 20110411
  Serious: Yes (Other)
  Sender: FDA-Public Use
  Company Number: US-JNJFOC-20101104773

PATIENT
  Age: 22 Year
  Sex: Female
  Weight: 68.04 kg

DRUGS (2)
  1. TYLENOL COLD MULTI-SYMPTOM NIGHTTIME RAPID RELEASE [Suspect]
     Indication: NASOPHARYNGITIS
     Route: 048
  2. BIRTH CONTROL PILL [Concomitant]

REACTIONS (3)
  - FACIAL BONES FRACTURE [None]
  - FATIGUE [None]
  - SYNCOPE [None]
